FAERS Safety Report 16539185 (Version 2)
Quarter: 2020Q1

REPORT INFORMATION
  Report Type: Report from Study
  Country: CA (occurrence: CA)
  Receive Date: 20190708
  Receipt Date: 20200320
  Transmission Date: 20200409
  Serious: Yes (Other)
  Sender: FDA-Public Use
  Company Number: CA-ROCHE-2321457

PATIENT
  Sex: Male

DRUGS (1)
  1. OCREVUS [Suspect]
     Active Substance: OCRELIZUMAB
     Indication: PRIMARY PROGRESSIVE MULTIPLE SCLEROSIS
     Dosage: 300 MG AT DAY 0 AND 14, THEN 600 MG EVERY 6 MONTH ;ONGOING: YES
     Route: 042
     Dates: start: 20190425

REACTIONS (22)
  - Fatigue [Recovered/Resolved]
  - Fatigue [Unknown]
  - Dyspnoea [Unknown]
  - Peripheral swelling [Unknown]
  - Pain in extremity [Unknown]
  - Gastrointestinal viral infection [Unknown]
  - Pyrexia [Recovered/Resolved]
  - Headache [Unknown]
  - Pulmonary oedema [Unknown]
  - General physical health deterioration [Not Recovered/Not Resolved]
  - Speech disorder [Unknown]
  - Bronchitis [Unknown]
  - Blood pressure decreased [Unknown]
  - Heart rate increased [Unknown]
  - Insomnia [Unknown]
  - Herpes zoster [Unknown]
  - Dizziness [Unknown]
  - Hot flush [Unknown]
  - Rash [Unknown]
  - Gastroenteritis viral [Unknown]
  - Haematochezia [Unknown]
  - Malaise [Unknown]
